FAERS Safety Report 18511999 (Version 1)
Quarter: 2020Q4

REPORT INFORMATION
  Report Type: Spontaneous
  Country: US (occurrence: US)
  Receive Date: 20201117
  Receipt Date: 20201117
  Transmission Date: 20210114
  Serious: Yes (Disabling, Other)
  Sender: FDA-Public Use
  Company Number: US-PURDUE-USA-2020-0164921

PATIENT

DRUGS (2)
  1. ALCOHOL. [Suspect]
     Active Substance: ALCOHOL
     Indication: PRODUCT USED FOR UNKNOWN INDICATION
     Route: 065
  2. OXYCODONE HYDROCHLORIDE (SIMILAR TO NDA 22-272) [Suspect]
     Active Substance: OXYCODONE HYDROCHLORIDE
     Indication: PRODUCT USED FOR UNKNOWN INDICATION
     Dosage: UNK
     Route: 048

REACTIONS (21)
  - Alcohol abuse [Unknown]
  - Abnormal behaviour [Unknown]
  - Loss of personal independence in daily activities [Unknown]
  - Pain [Unknown]
  - Disability [Unknown]
  - Stress [Unknown]
  - Depression [Unknown]
  - Paranoia [Unknown]
  - Disturbance in attention [Unknown]
  - Irritability [Unknown]
  - Memory impairment [Unknown]
  - Suicidal ideation [Unknown]
  - Insomnia [Unknown]
  - Hyperarousal [Unknown]
  - Social avoidant behaviour [Unknown]
  - Anxiety [Unknown]
  - Restlessness [Unknown]
  - Emotional distress [Unknown]
  - Overdose [Unknown]
  - Drug abuse [Unknown]
  - Somnolence [Unknown]
